FAERS Safety Report 15189890 (Version 1)
Quarter: 2018Q3

REPORT INFORMATION
  Report Type: Spontaneous
  Country: US (occurrence: US)
  Receive Date: 20180724
  Receipt Date: 20180724
  Transmission Date: 20181010
  Serious: Yes (Other)
  Sender: FDA-Public Use
  Company Number: US-SA-2018SA200692

PATIENT
  Age: 50 Year
  Sex: Female
  Weight: 83.46 kg

DRUGS (13)
  1. BENADRYL [Concomitant]
     Active Substance: DIPHENHYDRAMINE HYDROCHLORIDE
     Route: 065
  2. PARAPLATIN [Concomitant]
     Active Substance: CARBOPLATIN
     Route: 065
  3. XANAX [Concomitant]
     Active Substance: ALPRAZOLAM
     Route: 065
  4. TYLENOL [Concomitant]
     Active Substance: ACETAMINOPHEN
     Route: 065
  5. NEULASTA [Concomitant]
     Active Substance: PEGFILGRASTIM
     Route: 065
  6. REMERON [Concomitant]
     Active Substance: MIRTAZAPINE
     Route: 065
  7. TAXOTERE [Suspect]
     Active Substance: DOCETAXEL
     Dosage: 120 MG, Q3W
     Route: 042
     Dates: start: 20120130, end: 20120130
  8. ZOLOFT [Concomitant]
     Active Substance: SERTRALINE HYDROCHLORIDE
     Route: 065
  9. DECADRON [DEXAMETHASONE] [Concomitant]
     Route: 065
  10. HERCEPTIN [Concomitant]
     Active Substance: TRASTUZUMAB
     Route: 065
  11. ALOXI [Concomitant]
     Active Substance: PALONOSETRON HYDROCHLORIDE
     Route: 065
  12. ZOCOR [Concomitant]
     Active Substance: SIMVASTATIN
     Route: 065
  13. TAXOTERE [Suspect]
     Active Substance: DOCETAXEL
     Indication: BREAST CANCER FEMALE
     Dosage: 120 MG, Q3W
     Route: 042
     Dates: start: 20110928, end: 20110928

REACTIONS (1)
  - Alopecia [Not Recovered/Not Resolved]
